FAERS Safety Report 11066701 (Version 2)
Quarter: 2015Q2

REPORT INFORMATION
  Report Type: Spontaneous
  Country: US (occurrence: US)
  Receive Date: 20150425
  Receipt Date: 20150525
  Transmission Date: 20150821
  Serious: Yes (Other)
  Sender: FDA-Public Use
  Company Number: US-JNJFOC-20130318741

PATIENT
  Age: 62 Year
  Sex: Female

DRUGS (6)
  1. REMICADE [Suspect]
     Active Substance: INFLIXIMAB
     Indication: OSTEOARTHRITIS
     Route: 042
     Dates: start: 201209
  2. REMICADE [Suspect]
     Active Substance: INFLIXIMAB
     Indication: FIBROMYALGIA
     Route: 042
     Dates: start: 201209
  3. REMICADE [Suspect]
     Active Substance: INFLIXIMAB
     Indication: RHEUMATOID ARTHRITIS
     Route: 042
  4. REMICADE [Suspect]
     Active Substance: INFLIXIMAB
     Indication: RHEUMATOID ARTHRITIS
     Route: 042
     Dates: start: 201209
  5. REMICADE [Suspect]
     Active Substance: INFLIXIMAB
     Indication: OSTEOARTHRITIS
     Route: 042
  6. REMICADE [Suspect]
     Active Substance: INFLIXIMAB
     Indication: FIBROMYALGIA
     Route: 042

REACTIONS (5)
  - Adverse event [Unknown]
  - Dysgeusia [Unknown]
  - Fibromyalgia [Unknown]
  - Arthritis [Recovering/Resolving]
  - Off label use [Unknown]
